FAERS Safety Report 4823644-1 (Version None)
Quarter: 2005Q4

REPORT INFORMATION
  Report Type: 
  Country: None (occurrence: None)
  Receive Date: 20051109
  Receipt Date: 20051018
  Transmission Date: 20060501
  Serious: Yes (Other)
  Sender: FDA-Public Use
  Company Number: GB-GLAXOSMITHKLINE-B0398028A

PATIENT
  Sex: Male

DRUGS (2)
  1. SEROXAT [Suspect]
     Dosage: 20MG PER DAY
     Route: 065
     Dates: start: 20010418, end: 20020808
  2. LITHIUM [Concomitant]
     Indication: DEPRESSION
     Dates: start: 20011101

REACTIONS (8)
  - AGGRESSION [None]
  - COMPLETED SUICIDE [None]
  - EATING DISORDER [None]
  - FEELING ABNORMAL [None]
  - ILL-DEFINED DISORDER [None]
  - INTENTIONAL SELF-INJURY [None]
  - NAUSEA [None]
  - SUICIDE ATTEMPT [None]
